FAERS Safety Report 9936878 (Version 1)
Quarter: 2014Q1

REPORT INFORMATION
  Report Type: Spontaneous
  Country: US (occurrence: None)
  Receive Date: 20140115
  Receipt Date: 20140115
  Transmission Date: 20141002
  Serious: No
  Sender: FDA-Public Use
  Company Number: 2013US002851

PATIENT
  Age: 12 Year
  Sex: Male

DRUGS (2)
  1. ICLUSIG (PONATINIB) TABLET, 15MG [Suspect]
     Indication: CHRONIC MYELOID LEUKAEMIA
     Route: 048
  2. ASPIRIN (ASPIRIN) [Concomitant]

REACTIONS (2)
  - Neoplasm progression [None]
  - Off label use [None]
